FAERS Safety Report 7941301-X (Version None)
Quarter: 2011Q4

REPORT INFORMATION
  Report Type: 
  Country: None (occurrence: None)
  Receive Date: 20111128
  Receipt Date: 20111116
  Transmission Date: 20120403
  Serious: Yes (Other)
  Sender: FDA-Public Use
  Company Number: JP-UCBSA-044484

PATIENT
  Age: 43 Year
  Sex: Male
  Weight: 38.6 kg

DRUGS (14)
  1. KEPPRA [Suspect]
     Dosage: ROUTE: PEG
     Dates: start: 20110623, end: 20110101
  2. KEPPRA [Suspect]
     Dosage: ROUTE: PEG
     Dates: start: 20110915
  3. MUCOSOLVAN [Concomitant]
     Dosage: DAILY DOSE: 45 MG, ROUT: PEG
  4. PHENOBARBITAL TAB [Concomitant]
     Dosage: DAILY DOSE 99.9 MG , ROUT: PEG
  5. GASMOTIN [Concomitant]
     Dosage: DAILY DOSE : 9.9 MG, ROUT : PEG
  6. KEPPRA [Suspect]
     Dosage: ROUTE: PEG
     Dates: start: 20110413, end: 20110101
  7. BISOLVON [Concomitant]
     Dosage: DAILY DOSE: 12 MG, ROUT: PEG
  8. FAMOTIDINE [Concomitant]
     Dosage: DAILY DOSE: 10 MG, ROUT: PEG
  9. PANTOSIN [Concomitant]
     Dosage: DAILY DOSE: 600 MG, ROUT: PEG
  10. NEOPHYLLIN [Concomitant]
     Dosage: DAILY DOSE: 420 MG, ROUT: PEG
  11. ASPARA K [Concomitant]
     Dosage: DAILY DOSE: 2100 MG, ROUT: PEG
  12. CLEANAL [Concomitant]
     Dosage: DAILY DOSE: 999 MG, ROUT: PEG
  13. KEPPRA [Suspect]
     Indication: EPILEPSY
     Dosage: ROUTE: PEG
     Dates: start: 20110408, end: 20110412
  14. CLONAZEPAM [Concomitant]
     Dosage: DAILY DOSE: 3.51 MG, ROUT : PEG

REACTIONS (3)
  - SOMNOLENCE [None]
  - BRADYARRHYTHMIA [None]
  - BLOOD PRESSURE DECREASED [None]
